FAERS Safety Report 10997142 (Version 1)
Quarter: 2015Q2

REPORT INFORMATION
  Report Type: Spontaneous
  Country: US (occurrence: None)
  Receive Date: 20150407
  Receipt Date: 20150407
  Transmission Date: 20150821
  Serious: No
  Sender: FDA-Public Use
  Company Number: None

PATIENT
  Age: 24 Year
  Sex: Female
  Weight: 59.42 kg

DRUGS (4)
  1. FETZIMA [Suspect]
     Active Substance: LEVOMILNACIPRAN HYDROCHLORIDE
     Indication: ANXIETY
     Route: 048
     Dates: start: 20150120, end: 20150401
  2. FETZIMA [Concomitant]
     Active Substance: LEVOMILNACIPRAN HYDROCHLORIDE
  3. FETZIMA [Suspect]
     Active Substance: LEVOMILNACIPRAN HYDROCHLORIDE
     Indication: DEPRESSION
     Route: 048
     Dates: start: 20150120, end: 20150401
  4. MULTIVITAMIN GUMMY ADULT [Concomitant]

REACTIONS (4)
  - Tachycardia [None]
  - Abdominal pain [None]
  - Anxiety [None]
  - Ventricular extrasystoles [None]

NARRATIVE: CASE EVENT DATE: 20150401
